FAERS Safety Report 14648465 (Version 1)
Quarter: 2018Q1

REPORT INFORMATION
  Report Type: Spontaneous
  Country: ZA (occurrence: ZA)
  Receive Date: 20180316
  Receipt Date: 20180316
  Transmission Date: 20180509
  Serious: Yes (Hospitalization)
  Sender: FDA-Public Use
  Company Number: ZA-PFIZER INC-2018106024

PATIENT
  Age: 58 Year
  Sex: Female

DRUGS (6)
  1. AMILORETIC /00206601/ [Suspect]
     Active Substance: AMILORIDE HYDROCHLORIDE\HYDROCHLOROTHIAZIDE
     Dosage: 5/50 MG
  2. CARLOC [Suspect]
     Active Substance: CARVEDILOL
     Dosage: 25 MG, UNK
  3. PURICOS [Suspect]
     Active Substance: ALLOPURINOL
     Dosage: 300 MG, UNK
  4. PREXUM [Suspect]
     Active Substance: PERINDOPRIL ERBUMINE
     Dosage: 4 MG, UNK
  5. ASPAVOR [Suspect]
     Active Substance: ATORVASTATIN
     Dosage: 10 MG, UNK
  6. VENLOR XR [Suspect]
     Active Substance: VENLAFAXINE HYDROCHLORIDE
     Dosage: 75 MG, UNK

REACTIONS (4)
  - Cerebrovascular accident [Recovered/Resolved]
  - Paraesthesia oral [None]
  - Muscle twitching [Recovered/Resolved]
  - Paraesthesia oral [Recovered/Resolved]
